FAERS Safety Report 9081106 (Version 1)
Quarter: 2013Q1

REPORT INFORMATION
  Report Type: Report from Study
  Country: US (occurrence: US)
  Receive Date: 20130130
  Receipt Date: 20130130
  Transmission Date: 20140127
  Serious: No
  Sender: FDA-Public Use
  Company Number: US-ABBOTT-12P-163-0959705-00

PATIENT
  Sex: Female
  Weight: 63.11 kg

DRUGS (9)
  1. HUMIRA 40 MG/0.8 ML PEN [Suspect]
     Indication: CROHN^S DISEASE
     Dates: start: 20120418, end: 20120418
  2. HUMIRA 40 MG/0.8 ML PEN [Suspect]
     Dates: start: 20120502, end: 20120502
  3. HUMIRA 40 MG/0.8 ML PEN [Suspect]
     Dates: start: 20120516
  4. PENTASA [Concomitant]
     Indication: CROHN^S DISEASE
  5. BONIVA [Concomitant]
     Indication: OSTEOPOROSIS
     Dates: start: 2011
  6. ZESTRIL [Concomitant]
     Indication: HYPERTENSION
  7. MULTIVITAMIN [Concomitant]
     Indication: VITAMIN SUPPLEMENTATION
  8. XANAX [Concomitant]
     Indication: ANXIETY
  9. TYLENOL [Concomitant]
     Indication: HEADACHE

REACTIONS (3)
  - Vaginal fistula [Not Recovered/Not Resolved]
  - Faecal volume increased [Not Recovered/Not Resolved]
  - Abnormal faeces [Not Recovered/Not Resolved]
